FAERS Safety Report 11851538 (Version 1)
Quarter: 2015Q4

REPORT INFORMATION
  Report Type: Spontaneous
  Country: US (occurrence: US)
  Receive Date: 20151218
  Receipt Date: 20151218
  Transmission Date: 20160305
  Serious: No
  Sender: FDA-Public Use
  Company Number: US-JNJFOC-20151003540

PATIENT
  Age: 72 Year
  Sex: Female
  Weight: 61.24 kg

DRUGS (7)
  1. CALCIUM AND VITAMIN D [Concomitant]
     Active Substance: CALCIUM\VITAMIN D
     Indication: OSTEOPOROSIS PROPHYLAXIS
     Route: 065
  2. OMEPRAZOLE. [Concomitant]
     Active Substance: OMEPRAZOLE
     Indication: HYPERCHLORHYDRIA
     Route: 065
  3. WOMENS ROGAINE UNSCENTED [Suspect]
     Active Substance: MINOXIDIL
     Indication: PRODUCT USED FOR UNKNOWN INDICATION
     Dosage: ABOUT 1/2 CAPFUL
     Route: 061
  4. WOMENS ROGAINE UNSCENTED [Suspect]
     Active Substance: MINOXIDIL
     Route: 061
  5. VITAMIN B12 [Concomitant]
     Active Substance: CYANOCOBALAMIN
     Indication: ROUTINE HEALTH MAINTENANCE
     Route: 065
  6. CENTRUM 50 [Concomitant]
     Indication: ROUTINE HEALTH MAINTENANCE
     Route: 065
  7. TOPROL XL [Concomitant]
     Active Substance: METOPROLOL SUCCINATE
     Indication: HEART RATE IRREGULAR
     Route: 065

REACTIONS (2)
  - Alopecia [Not Recovered/Not Resolved]
  - Product quality issue [Unknown]
